FAERS Safety Report 8030616-5 (Version None)
Quarter: 2012Q1

REPORT INFORMATION
  Report Type: 
  Country: None (occurrence: None)
  Receive Date: 20120109
  Receipt Date: 20111230
  Transmission Date: 20120608
  Serious: Yes (Hospitalization)
  Sender: FDA-Public Use
  Company Number: FR-JNJFOC-20111210702

PATIENT
  Sex: Male
  Weight: 85 kg

DRUGS (7)
  1. TRABECTEDIN [Suspect]
     Indication: SARCOMA
     Dosage: 24 HOUR INFUSION
     Route: 042
     Dates: start: 20111213, end: 20111213
  2. IBUPROFEN [Suspect]
     Indication: PAIN IN EXTREMITY
     Route: 048
     Dates: start: 20110101, end: 20111219
  3. RAMIPRIL [Suspect]
     Indication: HYPERTENSION
     Route: 048
     Dates: start: 20110101, end: 20111219
  4. ACETAMINOPHEN [Concomitant]
     Indication: PAIN IN EXTREMITY
     Route: 048
     Dates: start: 20111129
  5. BISOPROLOL FUMARATE [Concomitant]
     Indication: CARDIAC FAILURE CHRONIC
     Route: 048
     Dates: start: 20110101
  6. LYRICA [Concomitant]
     Indication: ANXIETY
     Route: 048
     Dates: start: 20111129
  7. IBUPROFEN [Suspect]
     Route: 048

REACTIONS (2)
  - HYPERKALAEMIA [None]
  - RENAL FAILURE ACUTE [None]
